FAERS Safety Report 9228020 (Version 2)
Quarter: 2013Q4

REPORT INFORMATION
  Report Type: Spontaneous
  Country: US (occurrence: None)
  Receive Date: 20121023
  Receipt Date: 20131226
  Transmission Date: 20140711
  Serious: Yes (Other)
  Sender: FDA-Public Use
  Company Number: PHEH2012US016452

PATIENT
  Age: 54 Year
  Sex: Female

DRUGS (4)
  1. VIVELLE DOT [Suspect]
     Dosage: 0.05 02 TWICE PER WEEK
     Route: 062
     Dates: start: 20110917, end: 20120723
  2. ATENOLOL (ATENOLOL) [Concomitant]
  3. HYDROCODONE W/APAP (HYDROCODONE, PARACETAMOL) [Concomitant]
  4. CARISOPRODOL (CARISOPRODOL) [Concomitant]

REACTIONS (3)
  - Drug ineffective [None]
  - Menopausal symptoms [None]
  - Hot flush [None]
